FAERS Safety Report 25379515 (Version 1)
Quarter: 2025Q2

REPORT INFORMATION
  Report Type: Report from Study
  Country: FR (occurrence: FR)
  Receive Date: 20250530
  Receipt Date: 20250530
  Transmission Date: 20250717
  Serious: Yes (Hospitalization)
  Sender: PFIZER
  Company Number: FR-PFM-2025-02624

PATIENT
  Age: 94 Year
  Sex: Female
  Weight: 63 kg

DRUGS (7)
  1. ENCORAFENIB [Suspect]
     Active Substance: ENCORAFENIB
     Indication: Metastatic malignant melanoma
     Dosage: 225 MG, DAILY
     Route: 065
     Dates: start: 20250407
  2. ENCORAFENIB [Suspect]
     Active Substance: ENCORAFENIB
     Indication: BRAF V600E mutation positive
  3. BINIMETINIB [Suspect]
     Active Substance: BINIMETINIB
     Indication: Metastatic malignant melanoma
     Dosage: 60 MG, DAILY
     Route: 065
     Dates: start: 20250407
  4. BINIMETINIB [Suspect]
     Active Substance: BINIMETINIB
     Indication: BRAF V600E mutation positive
     Route: 065
  5. NIVOLUMAB [Concomitant]
     Active Substance: NIVOLUMAB
     Indication: Malignant melanoma
     Dosage: 48 MG, EVERY 4 WEEK
     Route: 065
     Dates: start: 20240222
  6. GLYCEROL/VASELINE/PARAFFINE [Concomitant]
     Indication: Radiation skin injury
     Route: 065
     Dates: start: 20250327
  7. BETAMETHASONE [Concomitant]
     Active Substance: BETAMETHASONE
     Indication: Radiation skin injury
     Route: 065
     Dates: start: 20250327

REACTIONS (1)
  - Splenic haemorrhage [Not Recovered/Not Resolved]

NARRATIVE: CASE EVENT DATE: 20250522
